FAERS Safety Report 8557995-4 (Version None)
Quarter: 2012Q3

REPORT INFORMATION
  Report Type: 
  Country: None (occurrence: None)
  Receive Date: 20120720
  Receipt Date: 20120706
  Transmission Date: 20120928
  Serious: Yes (Hospitalization, Other)
  Sender: FDA-Public Use
  Company Number: 2012-000122

PATIENT
  Age: 60 Year
  Sex: Female

DRUGS (25)
  1. ALENDRONATE SODIUM [Suspect]
     Indication: OSTEOPENIA
     Dosage: 70 MG ONCE WEEKLY, ORAL
     Route: 048
     Dates: start: 20080201, end: 20080101
  2. VITAMIN D (COLECALCIFEROL) [Concomitant]
  3. GLUCOSAMINE (GLUCOSAMINE) [Concomitant]
  4. CIPRO [Concomitant]
  5. LEVOXYL [Concomitant]
  6. VITAMIN TAB [Concomitant]
  7. CALCIUM CARBONATE [Concomitant]
  8. ACTONEL [Suspect]
     Indication: OSTEOPENIA
     Dosage: 35 MG, 1/WEEK, ORAL
     Route: 048
     Dates: start: 20040311, end: 20051201
  9. ZINC (ZINC) [Concomitant]
  10. PROTOPIC [Concomitant]
  11. ESTRING [Concomitant]
  12. OXYCODONE AND ACETAMINOPHEN [Concomitant]
  13. MAGNESIUM (MAGNESIUM) [Concomitant]
  14. TAMOXIFEN CITRATE [Concomitant]
  15. FOSAMAX [Suspect]
     Indication: OSTEOPENIA
     Dosage: ORAL 10 MG DAILY, ORAL 70 MG WEEKLY, ORAL
     Route: 048
     Dates: start: 19960101
  16. FOSAMAX [Suspect]
     Indication: OSTEOPENIA
     Dosage: ORAL 10 MG DAILY, ORAL 70 MG WEEKLY, ORAL
     Route: 048
     Dates: start: 19981201, end: 20020521
  17. FOSAMAX [Suspect]
     Indication: OSTEOPENIA
     Dosage: ORAL 10 MG DAILY, ORAL 70 MG WEEKLY, ORAL
     Route: 048
     Dates: start: 20060113, end: 20071115
  18. FOSAMAX [Suspect]
     Indication: OSTEOPENIA
     Dosage: ORAL 10 MG DAILY, ORAL 70 MG WEEKLY, ORAL
     Route: 048
     Dates: start: 20011211, end: 20021212
  19. AMOXICILLIN [Concomitant]
  20. LEVOTHROID [Concomitant]
  21. DIFLUCAN [Concomitant]
  22. TOBRADEX [Concomitant]
  23. ZOCOR [Concomitant]
  24. CEPHALEXIN [Concomitant]
  25. AMBIEN [Concomitant]

REACTIONS (25)
  - PATHOLOGICAL FRACTURE [None]
  - PAIN IN EXTREMITY [None]
  - LOW TURNOVER OSTEOPATHY [None]
  - ASTHENIA [None]
  - FEMUR FRACTURE [None]
  - DEVICE DISLOCATION [None]
  - BONE PAIN [None]
  - SCIATICA [None]
  - MUSCULOSKELETAL STIFFNESS [None]
  - MYOSITIS [None]
  - BURSITIS [None]
  - IMPAIRED HEALING [None]
  - BONE DENSITY DECREASED [None]
  - BACK PAIN [None]
  - SACROILIITIS [None]
  - STRESS FRACTURE [None]
  - BONE FORMATION DECREASED [None]
  - HYPOAESTHESIA [None]
  - MUSCULAR WEAKNESS [None]
  - BONE DISORDER [None]
  - PAIN [None]
  - MULTIPLE FRACTURES [None]
  - RADICULOPATHY [None]
  - PROCEDURAL PAIN [None]
  - OSTEOGENESIS IMPERFECTA [None]
